FAERS Safety Report 15076975 (Version 3)
Quarter: 2018Q3

REPORT INFORMATION
  Report Type: Report from Study
  Country: US (occurrence: US)
  Receive Date: 20180627
  Receipt Date: 20180806
  Transmission Date: 20181010
  Serious: Yes (Other)
  Sender: FDA-Public Use
  Company Number: US-PFIZER INC-2018255045

PATIENT
  Age: 4 Year
  Sex: Male
  Weight: 14 kg

DRUGS (5)
  1. CYTOXAN [Suspect]
     Active Substance: CYCLOPHOSPHAMIDE
     Indication: NEUROBLASTOMA
     Dosage: 220 MG, DAILY (LIQUID, EVERY 20H, DAYS 1?5)
     Route: 042
     Dates: start: 20180522, end: 20180526
  2. CYTOXAN [Suspect]
     Active Substance: CYCLOPHOSPHAMIDE
     Dosage: 220 MG, DAILY (LIQUID, EVERY 20H, DAYS 1?5)
     Route: 042
     Dates: start: 20180618
  3. HYCAMTIN [Suspect]
     Active Substance: TOPOTECAN HYDROCHLORIDE
     Indication: NEUROBLASTOMA
     Dosage: 0.68 MG, DAILY ( LIQUID, EVERY 20H, DAYS 1 ?5)
     Route: 042
     Dates: start: 20180522, end: 20180526
  4. XALKORI [Suspect]
     Active Substance: CRIZOTINIB
     Indication: NEUROBLASTOMA
     Dosage: 125 MG, BID
     Route: 048
     Dates: start: 20180525, end: 20180708
  5. HYCAMTIN [Suspect]
     Active Substance: TOPOTECAN HYDROCHLORIDE
     Dosage: 0.68 MG, DAILY ( LIQUID, EVERY 20H, DAYS 1 ?5)
     Route: 042
     Dates: start: 20180618

REACTIONS (4)
  - Constipation [Recovering/Resolving]
  - Thrombocytopenia [Recovering/Resolving]
  - Anaemia [Recovering/Resolving]
  - Condition aggravated [Recovering/Resolving]

NARRATIVE: CASE EVENT DATE: 20180604
